FAERS Safety Report 7239894-3 (Version None)
Quarter: 2011Q1

REPORT INFORMATION
  Report Type: 
  Country: None (occurrence: None)
  Receive Date: 20110123
  Receipt Date: 20110111
  Transmission Date: 20110831
  Serious: Yes (Other)
  Sender: FDA-Public Use
  Company Number: US-BAYER-2011-003741

PATIENT
  Sex: Male
  Weight: 74.83 kg

DRUGS (2)
  1. EYE DROPS [Concomitant]
  2. ALKA-SELTZER PLUS COLD MEDICINE - CHERRY BURST [Suspect]
     Dosage: COUNT BOTTLE 20S

REACTIONS (1)
  - INTRAOCULAR PRESSURE INCREASED [None]
